FAERS Safety Report 19722038 (Version 1)
Quarter: 2021Q3

REPORT INFORMATION
  Report Type: Spontaneous
  Country: ES (occurrence: ES)
  Receive Date: 20210819
  Receipt Date: 20210819
  Transmission Date: 20211014
  Serious: Yes (Other)
  Sender: FDA-Public Use
  Company Number: NVSC2021ES179831

PATIENT
  Age: 53 Year
  Sex: Female
  Weight: 91.9 kg

DRUGS (1)
  1. METFORMINA SANDOZ 850 MG COMPRIMIDOS REVESTIDOS [Suspect]
     Active Substance: METFORMIN HYDROCHLORIDE
     Indication: DIABETES MELLITUS
     Dosage: 425 MG (CON PELICULA EFG 50 COMPRIMIDOS)
     Route: 048
     Dates: start: 20210406

REACTIONS (2)
  - Dyspnoea [Recovered/Resolved]
  - Breath sounds abnormal [Recovered/Resolved]

NARRATIVE: CASE EVENT DATE: 20210505
